FAERS Safety Report 23024702 (Version 1)
Quarter: 2023Q4

REPORT INFORMATION
  Report Type: Spontaneous
  Country: US (occurrence: US)
  Receive Date: 20231004
  Receipt Date: 20231004
  Transmission Date: 20240110
  Serious: No
  Sender: FDA-Public Use
  Company Number: US-SANOFI-01777984

PATIENT
  Age: 79 Year
  Sex: Male

DRUGS (1)
  1. DUPIXENT [Suspect]
     Active Substance: DUPILUMAB
     Indication: Eczema
     Dosage: UNK

REACTIONS (5)
  - Sleep disorder [Unknown]
  - COVID-19 [Unknown]
  - Pain in extremity [Unknown]
  - Ocular hyperaemia [Unknown]
  - Myalgia [Unknown]

NARRATIVE: CASE EVENT DATE: 20230901
